FAERS Safety Report 10676278 (Version 2)
Quarter: 2015Q4

REPORT INFORMATION
  Report Type: Spontaneous
  Country: CA (occurrence: CA)
  Receive Date: 20141226
  Receipt Date: 20151208
  Transmission Date: 20160304
  Serious: Yes (Other)
  Sender: FDA-Public Use
  Company Number: CA-ROCHE-1512486

PATIENT
  Age: 38 Year
  Sex: Female

DRUGS (3)
  1. HERCEPTIN [Suspect]
     Active Substance: TRASTUZUMAB
     Indication: BREAST CANCER
     Dosage: THERAPY DURATION: 1.3 YEARS,?VIALS, POWDER FOR SOLUTION INTRAVENOUS
     Route: 042
  2. PERJETA [Suspect]
     Active Substance: PERTUZUMAB
     Indication: BREAST CANCER
     Dosage: 14ML VIAL - CONCENTRATE SOLUTION; SOLUTION INTRAVENOUS
     Route: 042
  3. TAXOTERE [Suspect]
     Active Substance: DOCETAXEL
     Indication: BREAST CANCER
     Dosage: 558.0
     Route: 042

REACTIONS (9)
  - Inflammatory carcinoma of breast recurrent [Unknown]
  - Metastases to skin [Unknown]
  - Bronchitis [Unknown]
  - Pharyngitis [Unknown]
  - Neuropathy peripheral [Unknown]
  - Pyrexia [Unknown]
  - Oropharyngeal pain [Unknown]
  - Malignant neoplasm progression [Unknown]
  - Upper respiratory tract congestion [Unknown]
